FAERS Safety Report 20759913 (Version 1)
Quarter: 2022Q2

REPORT INFORMATION
  Report Type: Spontaneous
  Country: US (occurrence: US)
  Receive Date: 20220427
  Receipt Date: 20220427
  Transmission Date: 20220721
  Serious: No
  Sender: FDA-Public Use
  Company Number: US-BAUSCH-BL-2022-009921

PATIENT
  Age: 77 Year
  Sex: Female
  Weight: 45.854 kg

DRUGS (2)
  1. UCERIS [Suspect]
     Active Substance: BUDESONIDE
     Indication: Colitis ulcerative
     Route: 048
     Dates: start: 20220327, end: 20220420
  2. LIALDA [Concomitant]
     Active Substance: MESALAMINE

REACTIONS (3)
  - Flatulence [Unknown]
  - Pain [Unknown]
  - Bowel movement irregularity [Unknown]

NARRATIVE: CASE EVENT DATE: 20220101
